FAERS Safety Report 7997174-2 (Version None)
Quarter: 2011Q4

REPORT INFORMATION
  Report Type: 
  Country: None (occurrence: None)
  Receive Date: 20111221
  Receipt Date: 20111213
  Transmission Date: 20120403
  Serious: Yes (Other)
  Sender: FDA-Public Use
  Company Number: US-JNJFOC-20111203857

PATIENT
  Age: 53 Year
  Sex: Female
  Weight: 63.5 kg

DRUGS (8)
  1. OTHER THERAPEUTIC PRODUCTS [Concomitant]
     Indication: MEDICAL DIET
     Route: 065
     Dates: start: 20060101
  2. LOVAZA [Concomitant]
     Indication: MEDICAL DIET
     Route: 065
     Dates: start: 20060101
  3. XANAX [Concomitant]
     Indication: ANXIETY
     Dosage: AS NEEDED
     Route: 065
     Dates: start: 20080101
  4. COPAXONE [Concomitant]
     Indication: MULTIPLE SCLEROSIS
     Route: 065
     Dates: start: 20080101
  5. HONEY [Concomitant]
     Indication: MEDICAL DIET
     Dosage: 1 SPOONFUL
     Route: 065
     Dates: start: 20060101
  6. VITAMIN B-12 [Concomitant]
     Indication: MEDICAL DIET
     Route: 065
     Dates: start: 20060101
  7. IRON SUPPLEMENT [Concomitant]
     Indication: MEDICAL DIET
     Route: 065
     Dates: start: 20060101
  8. LISTERINE TOTAL CARE PLUS WHITENING [Suspect]
     Indication: BREATH ODOUR
     Dosage: 1 CAPFUL
     Route: 048
     Dates: start: 20111205, end: 20111205

REACTIONS (6)
  - ORAL DISCOMFORT [None]
  - DRUG INEFFECTIVE [None]
  - TONGUE BLISTERING [None]
  - TOOTH DISCOLOURATION [None]
  - OROPHARYNGEAL BLISTERING [None]
  - AGEUSIA [None]
